FAERS Safety Report 10206679 (Version 1)
Quarter: 2014Q2

REPORT INFORMATION
  Report Type: Spontaneous
  Country: US (occurrence: None)
  Receive Date: 20140527
  Receipt Date: 20140527
  Transmission Date: 20141212
  Serious: Yes (Hospitalization, Other)
  Sender: FDA-Public Use
  Company Number: None

PATIENT
  Age: 28 Year
  Sex: Male
  Weight: 68.04 kg

DRUGS (1)
  1. OXYMORPHONE 10 MG TEVA [Suspect]
     Indication: NEUROPATHY PERIPHERAL
     Dosage: 4 PILLS DAILY?FOUR TIMES DAILY?TAKEN BY MOUTH
     Route: 048
     Dates: start: 20140522, end: 20140524

REACTIONS (2)
  - Product quality issue [None]
  - Drug ineffective [None]
